FAERS Safety Report 11381521 (Version 4)
Quarter: 2018Q2

REPORT INFORMATION
  Report Type: Report from Study
  Country: DE (occurrence: DE)
  Receive Date: 20150814
  Receipt Date: 20180403
  Transmission Date: 20180711
  Serious: Yes (Other)
  Sender: FDA-Public Use
  Company Number: DE-SA-CLOF-1001969

PATIENT
  Age: 48 Year
  Sex: Female

DRUGS (14)
  1. ENDOXAN [Suspect]
     Active Substance: CYCLOPHOSPHAMIDE
     Indication: BONE MARROW CONDITIONING REGIMEN
     Route: 065
  2. ARA-C [Suspect]
     Active Substance: CYTARABINE
     Indication: ASPARTATE AMINOTRANSFERASE ABNORMAL
     Dosage: 1000 MG/M2, QD, 2 HOUR INFUSION
     Route: 041
  3. ANTI-THYMOCYTE GLOBULIN (RABBIT) NOS [Suspect]
     Active Substance: LAPINE T-LYMPHOCYTE IMMUNE GLOBULIN
     Indication: BONE MARROW CONDITIONING REGIMEN
     Route: 065
  4. LEVOFLOXACIN. [Concomitant]
     Active Substance: LEVOFLOXACIN
     Indication: ANTIBIOTIC PROPHYLAXIS
     Route: 065
  5. CYCLOSPORINE. [Concomitant]
     Active Substance: CYCLOSPORINE
     Indication: PROPHYLAXIS AGAINST TRANSPLANT REJECTION
     Dosage: FROM DAY -1 (TARGET TROUGH LEVEL: 120-150 NG/ML), TAPERED FROM DAYS +70 TO +90
     Route: 065
  6. MYCOPHENOLATE MOFETIL. [Concomitant]
     Active Substance: MYCOPHENOLATE MOFETIL
     Indication: PROPHYLAXIS AGAINST GRAFT VERSUS HOST DISEASE
     Dosage: 10 MG/KG, TID?STARTING AT THE DAY OF TRANSPLANTATION, STOPPED AT DAY +50
     Route: 065
  7. CLOFARABINE. [Suspect]
     Active Substance: CLOFARABINE
     Indication: ASPARTATE AMINOTRANSFERASE ABNORMAL
     Dosage: 30 MG/M2, QD, 1 HOUR INFUSION
     Route: 041
  8. MYCOPHENOLATE MOFETIL. [Concomitant]
     Active Substance: MYCOPHENOLATE MOFETIL
     Indication: PROPHYLAXIS AGAINST TRANSPLANT REJECTION
     Dosage: 10 MG/KG, TID?STARTING AT THE DAY OF TRANSPLANTATION, STOPPED AT DAY +50
     Route: 065
  9. METRONIDAZOLE. [Concomitant]
     Active Substance: METRONIDAZOLE
     Indication: ANTIBIOTIC PROPHYLAXIS
     Dosage: WITH THE BEGINNING OF RIC UNTIL DAY +35
     Route: 065
  10. CLOFARABINE. [Suspect]
     Active Substance: CLOFARABINE
     Indication: ACUTE MYELOID LEUKAEMIA
     Dosage: 30 MG/M2, QD, 1 HOUR INFUSION
     Route: 041
  11. ARA-C [Suspect]
     Active Substance: CYTARABINE
     Indication: ACUTE MYELOID LEUKAEMIA
     Dosage: 1000 MG/M2, QD, 2 HOUR INFUSION
     Route: 041
  12. CYCLOSPORINE. [Concomitant]
     Active Substance: CYCLOSPORINE
     Indication: PROPHYLAXIS AGAINST GRAFT VERSUS HOST DISEASE
     Dosage: FROM DAY -1 (TARGET TROUGH LEVEL: 120-150 NG/ML), TAPERED FROM DAYS +70 TO +90
     Route: 065
  13. FLUCONAZOLE. [Concomitant]
     Active Substance: FLUCONAZOLE
     Indication: ANTIFUNGAL PROPHYLAXIS
     Dosage: UNTIL DAY +80
     Route: 065
  14. ACICLOVIR [Concomitant]
     Active Substance: ACYCLOVIR
     Indication: ANTIVIRAL PROPHYLAXIS
     Dosage: 5 MG/KG, QD?FROM DAY+1 UNTIL RECOVERY OF NEUTROPHILS
     Route: 065

REACTIONS (3)
  - Haematotoxicity [Unknown]
  - Mucosal inflammation [Unknown]
  - Pyrexia [Unknown]
